FAERS Safety Report 5220839-2 (Version None)
Quarter: 2007Q1

REPORT INFORMATION
  Report Type: 
  Country: None (occurrence: None)
  Receive Date: 20070123
  Receipt Date: 20070108
  Transmission Date: 20070707
  Serious: Yes (Death, Hospitalization)
  Sender: FDA-Public Use
  Company Number: 15325

PATIENT
  Age: 65 Year
  Sex: Male

DRUGS (2)
  1. CARBOPLATIN [Suspect]
     Dosage: 387 MG PER_CYCLE IV
     Route: 042
     Dates: start: 20061016, end: 20061116
  2. ERBITUX [Concomitant]

REACTIONS (9)
  - ACUTE RESPIRATORY DISTRESS SYNDROME [None]
  - BRONCHOPULMONARY ASPERGILLOSIS [None]
  - GASTROINTESTINAL HAEMORRHAGE [None]
  - LUNG DISORDER [None]
  - MULTI-ORGAN FAILURE [None]
  - PANCYTOPENIA [None]
  - PNEUMOCOCCAL INFECTION [None]
  - PULMONARY TOXICITY [None]
  - SEPTIC SHOCK [None]
